FAERS Safety Report 15565457 (Version 1)
Quarter: 2018Q4

REPORT INFORMATION
  Report Type: Spontaneous
  Country: US (occurrence: US)
  Receive Date: 20181024
  Receipt Date: 20181024
  Transmission Date: 20190205
  Serious: No
  Sender: FDA-Public Use
  Company Number: None

PATIENT
  Age: 26 Year
  Weight: 88 kg

DRUGS (2)
  1. ALPRAZOLAM ER [Suspect]
     Active Substance: ALPRAZOLAM
     Indication: ANXIETY DISORDER
     Route: 048
  2. ALPRAZOLAM. [Suspect]
     Active Substance: ALPRAZOLAM
     Indication: ANXIETY DISORDER
     Route: 048
     Dates: start: 201708, end: 201810

REACTIONS (2)
  - Rash [None]
  - Anxiety [None]
